FAERS Safety Report 4897533-0 (Version None)
Quarter: 2005Q4

REPORT INFORMATION
  Report Type: 
  Country: None (occurrence: None)
  Receive Date: 20051223
  Receipt Date: 20050913
  Transmission Date: 20060501
  Serious: No
  Sender: FDA-Public Use
  Company Number: 05P-163-0310788-00

PATIENT
  Age: 72 Year
  Sex: Female
  Weight: 50.8029 kg

DRUGS (11)
  1. HUMIRA [Suspect]
     Indication: RHEUMATOID ARTHRITIS
     Dosage: 40 MG, 1 IN 2 WK, SUBCUTANEOUS
     Route: 058
     Dates: start: 20030101
  2. ZETIA [Concomitant]
  3. CAPTOPRIL [Concomitant]
  4. DIGOXIN [Concomitant]
  5. SALSALATE [Concomitant]
  6. CARVEDILOL [Concomitant]
  7. ASPIRIN [Concomitant]
  8. ZAROXOLYN [Concomitant]
  9. POTASSIUM [Concomitant]
  10. BUMETANIDE [Concomitant]
  11. ACETAMINOPHEN W/ CODEINE [Concomitant]

REACTIONS (1)
  - NASOPHARYNGITIS [None]
